FAERS Safety Report 22291748 (Version 1)
Quarter: 2023Q2

REPORT INFORMATION
  Report Type: Spontaneous
  Country: US (occurrence: None)
  Receive Date: 20230505
  Receipt Date: 20230505
  Transmission Date: 20230721
  Serious: Yes (Hospitalization)
  Sender: FDA-Public Use
  Company Number: None

PATIENT
  Age: 59 Year
  Sex: Female
  Weight: 73.2 kg

DRUGS (1)
  1. NIVOLUMAB [Suspect]
     Active Substance: NIVOLUMAB
     Indication: Product used for unknown indication
     Dosage: FREQUENCY : EVERY OTHER WEEK;?
     Route: 042
     Dates: start: 20220601

REACTIONS (13)
  - Fatigue [None]
  - Vomiting [None]
  - Hypophagia [None]
  - Dehydration [None]
  - Tachycardia [None]
  - Hypotension [None]
  - Hypercalcaemia [None]
  - Sepsis [None]
  - Acute kidney injury [None]
  - Deep vein thrombosis [None]
  - Hypokalaemia [None]
  - Blood corticotrophin decreased [None]
  - Hypophysitis [None]

NARRATIVE: CASE EVENT DATE: 20230427
